FAERS Safety Report 4736222-X (Version None)
Quarter: 2005Q3

REPORT INFORMATION
  Report Type: 
  Country: None (occurrence: None)
  Receive Date: 20050808
  Receipt Date: 20050713
  Transmission Date: 20060218
  Serious: Yes (Other)
  Sender: FDA-Public Use
  Company Number: PHBS2005TR10224

PATIENT
  Age: 34 Year
  Sex: Female

DRUGS (1)
  1. VOLTAREN [Suspect]
     Route: 030

REACTIONS (6)
  - EMBOLIA CUTIS MEDICAMENTOSA [None]
  - INJECTION SITE DISCOLOURATION [None]
  - INJECTION SITE NECROSIS [None]
  - INJECTION SITE PAIN [None]
  - INJECTION SITE ULCER [None]
  - WHITE BLOOD CELL COUNT INCREASED [None]
